FAERS Safety Report 8918924 (Version 3)
Quarter: 2014Q1

REPORT INFORMATION
  Report Type: Report from Study
  Country: JP (occurrence: JP)
  Receive Date: 20121121
  Receipt Date: 20140128
  Transmission Date: 20141002
  Serious: Yes (Hospitalization)
  Sender: FDA-Public Use
  Company Number: JP-VERTEX PHARMACEUTICAL INC.-AE-2012-007802

PATIENT
  Age: 73 Year
  Sex: Female

DRUGS (15)
  1. VX-950 (TELAPREVIR) [Suspect]
     Indication: CHRONIC HEPATITIS C
     Dosage: 2250 MG, QD
     Route: 048
     Dates: start: 20120327, end: 20120423
  2. VX-950 (TELAPREVIR) [Suspect]
     Dosage: 1500 MG, QD
     Route: 048
     Dates: start: 20120424, end: 20120510
  3. VX-950 (TELAPREVIR) [Suspect]
     Dosage: 1000 MG, QD
     Route: 048
     Dates: start: 20120511, end: 20120511
  4. REBETOL [Suspect]
     Indication: CHRONIC HEPATITIS C
     Dosage: 600 MG, QD
     Route: 048
     Dates: start: 20120327, end: 20120410
  5. REBETOL [Suspect]
     Dosage: 400 MG, QD
     Route: 048
     Dates: start: 20120411, end: 20120510
  6. REBETOL [Suspect]
     Dosage: 200 MG, QD
     Route: 048
     Dates: start: 20120511, end: 20120513
  7. PEGINTRON [Suspect]
     Indication: CHRONIC HEPATITIS C
     Dosage: 1.5 ?G/KG, QW
     Route: 058
     Dates: start: 20120327, end: 20120507
  8. ADOAIR [Concomitant]
     Dosage: 4 DF, QD
     Route: 055
  9. ALLERMIST [Concomitant]
     Dosage: RIGHT + LEFT, QD
     Route: 045
     Dates: end: 20120519
  10. EBASTEL [Concomitant]
     Dosage: UNK
     Route: 048
     Dates: start: 20120327
  11. NOVAMIN [Concomitant]
     Dosage: 3 DF, QD
     Route: 048
     Dates: start: 20120404
  12. MYSLEE [Concomitant]
     Dosage: 1 DF, QD PRN
     Route: 048
     Dates: start: 20120507
  13. LAMISIL [Concomitant]
     Dosage: 10 G, QD
     Route: 061
     Dates: start: 20120508, end: 20120519
  14. DIQUAS [Concomitant]
     Dosage: 4 TIMES A DAY, RIGHT AND LEFT
     Route: 047
     Dates: start: 20120514, end: 20120619
  15. PURSENNID [Concomitant]
     Dosage: 2 DF, QD
     Route: 048
     Dates: start: 20120515

REACTIONS (3)
  - Decreased appetite [Recovered/Resolved]
  - Vomiting [Recovered/Resolved]
  - Nausea [Recovered/Resolved]
